FAERS Safety Report 5200926-5 (Version None)
Quarter: 2007Q1

REPORT INFORMATION
  Report Type: 
  Country: None (occurrence: None)
  Receive Date: 20070103
  Receipt Date: 20061221
  Transmission Date: 20070707
  Serious: Yes (Other)
  Sender: FDA-Public Use
  Company Number: 2006SP000173

PATIENT
  Age: 52 Year
  Sex: Male

DRUGS (4)
  1. PEGETRON (PEGINTERFERON ALFA-2B W/RIBAVIRIN) (PEGYLATED INTERFERON ALF [Suspect]
     Indication: DRUG USE FOR UNKNOWN INDICATION
     Dosage: SC
     Route: 058
     Dates: end: 20060820
  2. PEGETRON (PEGINTERFERON ALFA-2B W/RIBAVIRIN) (PEGYLATED INTERFERON ALF [Suspect]
     Dosage: PO
     Route: 048
     Dates: end: 20060820
  3. IMOVANE [Concomitant]
  4. HYDROXYZINE [Concomitant]

REACTIONS (2)
  - EYE HAEMORRHAGE [None]
  - RETINAL EXUDATES [None]
